FAERS Safety Report 9723294 (Version 2)
Quarter: 2013Q4

REPORT INFORMATION
  Report Type: Report from Study
  Country: US (occurrence: US)
  Receive Date: 20131202
  Receipt Date: 20131223
  Transmission Date: 20140711
  Serious: Yes (Hospitalization)
  Sender: FDA-Public Use
  Company Number: US-GLAXOSMITHKLINE-A1051377A

PATIENT
  Age: 51 Year
  Sex: Male
  Weight: 115.2 kg

DRUGS (4)
  1. OFATUMUMAB [Suspect]
     Indication: CHRONIC LYMPHOCYTIC LEUKAEMIA
     Dosage: 1000MG MONTHLY
     Route: 042
     Dates: start: 20130808
  2. INVESTIGATIONAL STUDY DRUG [Suspect]
     Indication: CHRONIC LYMPHOCYTIC LEUKAEMIA
     Dosage: 150MG TWICE PER DAY
     Route: 048
     Dates: start: 20130808
  3. METFORMIN [Concomitant]
     Dates: start: 20130617
  4. OXYCODONE [Concomitant]
     Dates: start: 20130930, end: 20131030

REACTIONS (3)
  - Pyrexia [Recovered/Resolved]
  - Diarrhoea [Recovered/Resolved]
  - Colitis [Recovered/Resolved]
